FAERS Safety Report 7640920-8 (Version None)
Quarter: 2011Q3

REPORT INFORMATION
  Report Type: 
  Country: None (occurrence: None)
  Receive Date: 20110721
  Receipt Date: 20110714
  Transmission Date: 20111222
  Serious: Yes (Other)
  Sender: FDA-Public Use
  Company Number: 2010SP032657

PATIENT
  Age: 40 Year
  Sex: Female

DRUGS (2)
  1. GANIRELIX ACETATE INJECTION [Suspect]
     Indication: IN VITRO FERTILISATION
     Dosage: 1 DF;QD;SC
     Route: 058
     Dates: start: 20100531, end: 20100607
  2. GONAL-F [Concomitant]

REACTIONS (6)
  - VOMITING [None]
  - OROPHARYNGEAL PAIN [None]
  - VIRAL INFECTION [None]
  - HEADACHE [None]
  - NAUSEA [None]
  - FATIGUE [None]
